FAERS Safety Report 5192794-5 (Version None)
Quarter: 2006Q4

REPORT INFORMATION
  Report Type: 
  Country: None (occurrence: None)
  Receive Date: 20061228
  Receipt Date: 20061225
  Transmission Date: 20070319
  Serious: Yes (Other)
  Sender: FDA-Public Use
  Company Number: JP-BAYER-200611310BYL

PATIENT
  Sex: Female

DRUGS (1)
  1. AVELOX [Suspect]
     Indication: BRONCHIECTASIS
     Dosage: TOTAL DAILY DOSE: 200 MG  UNIT DOSE: 400 MG
     Route: 048
     Dates: start: 20061101

REACTIONS (1)
  - LOSS OF CONSCIOUSNESS [None]
